FAERS Safety Report 17882366 (Version 1)
Quarter: 2020Q2

REPORT INFORMATION
  Report Type: Spontaneous
  Country: US (occurrence: US)
  Receive Date: 20200610
  Receipt Date: 20200610
  Transmission Date: 20200714
  Serious: No
  Sender: FDA-Public Use
  Company Number: US-PFIZER INC-2020056872

PATIENT
  Age: 66 Year
  Sex: Female
  Weight: 42 kg

DRUGS (5)
  1. INLYTA [Suspect]
     Active Substance: AXITINIB
     Indication: RENAL CANCER
     Dosage: 5 MG, UNK
  2. INLYTA [Suspect]
     Active Substance: AXITINIB
     Dosage: 1 MG
  3. INLYTA [Suspect]
     Active Substance: AXITINIB
     Dosage: 3 MG, 2X/DAY
  4. INLYTA [Suspect]
     Active Substance: AXITINIB
     Dosage: 3 MG, 2X/DAY (1MG 3 TABLETS BY MOUTH TWICE DAILY)
     Route: 048
     Dates: start: 20200206
  5. INLYTA [Suspect]
     Active Substance: AXITINIB
     Dosage: 4 MG (TAKES (3) 1MG IN THE MORNING AND (3) 1MG IN THE EVENING)

REACTIONS (2)
  - Constipation [Unknown]
  - Abdominal pain upper [Unknown]
